FAERS Safety Report 16782494 (Version 1)
Quarter: 2019Q3

REPORT INFORMATION
  Report Type: Spontaneous
  Country: US (occurrence: US)
  Receive Date: 20190906
  Receipt Date: 20190906
  Transmission Date: 20191005
  Serious: Yes (Other)
  Sender: FDA-Public Use
  Company Number: US-GW PHARMA-201908USGW2965

PATIENT

DRUGS (5)
  1. EPIDIOLEX [Suspect]
     Active Substance: CANNABIDIOL
     Dosage: 7.51 MG/KG/DAY, 75 MILLIGRAM, QD (25 MILLIGRAM IN THE MORNING AND 50 MILLIGRAM IN THE EVENING)
     Route: 048
     Dates: start: 201903, end: 20190414
  2. EPIDIOLEX [Suspect]
     Active Substance: CANNABIDIOL
     Dosage: 10.02 MG/KG/DAY, 50 MILLIGRAM, BID
     Route: 048
     Dates: start: 201901, end: 201903
  3. EPIDIOLEX [Suspect]
     Active Substance: CANNABIDIOL
     Indication: LENNOX-GASTAUT SYNDROME
     Dosage: 5.01 MG/KG/DAY, 50 MILLIGRAM, QD (0.2ML EVERY MORNING AND 0.3ML EVERY EVENING)
     Route: 048
     Dates: start: 20190104, end: 201901
  4. DIAZEPAM. [Concomitant]
     Active Substance: DIAZEPAM
     Indication: PRODUCT USED FOR UNKNOWN INDICATION
     Dosage: 12 MILLIGRAM, QD
     Route: 065
  5. TOPIRAMATE. [Concomitant]
     Active Substance: TOPIRAMATE
     Indication: PRODUCT USED FOR UNKNOWN INDICATION
     Dosage: 120 MILLIGRAM, QD
     Route: 065

REACTIONS (5)
  - Apnoea [Unknown]
  - Generalised tonic-clonic seizure [Recovered/Resolved]
  - Seizure [Unknown]
  - Cyanosis [Unknown]
  - Change in seizure presentation [Recovered/Resolved]

NARRATIVE: CASE EVENT DATE: 201903
